FAERS Safety Report 24906240 (Version 2)
Quarter: 2025Q1

REPORT INFORMATION
  Report Type: Spontaneous
  Country: SG (occurrence: SG)
  Receive Date: 20250130
  Receipt Date: 20250205
  Transmission Date: 20250408
  Serious: Yes (Life-Threatening, Hospitalization, Other)
  Sender: JUBILANT
  Company Number: SG-JUBILANT CADISTA PHARMACEUTICALS-2025SG000121

PATIENT
  Sex: Female
  Weight: 0.71 kg

DRUGS (2)
  1. INDOMETHACIN [Suspect]
     Active Substance: INDOMETHACIN
     Indication: Patent ductus arteriosus
     Route: 065
  2. CAFFEINE [Concomitant]
     Active Substance: CAFFEINE
     Indication: Sepsis
     Route: 065

REACTIONS (11)
  - Intussusception [Unknown]
  - Necrotising enterocolitis neonatal [Recovering/Resolving]
  - Regurgitation [Unknown]
  - Apnoea [Unknown]
  - Abdominal distension [Unknown]
  - Neonatal tachycardia [Unknown]
  - Metabolic acidosis [Recovering/Resolving]
  - Intestinal perforation [Unknown]
  - Pneumoperitoneum [Recovering/Resolving]
  - Feeding intolerance [Recovering/Resolving]
  - Peritonitis [Unknown]
